FAERS Safety Report 5426709-9 (Version None)
Quarter: 2007Q3

REPORT INFORMATION
  Report Type: 
  Country: None (occurrence: None)
  Receive Date: 20070827
  Receipt Date: 20070730
  Transmission Date: 20080115
  Serious: Yes (Other)
  Sender: FDA-Public Use
  Company Number: JP-PFIZER INC-2007060712

PATIENT
  Age: 54 Year
  Sex: Male

DRUGS (4)
  1. ZYVOX [Suspect]
     Indication: MENINGITIS
     Route: 042
     Dates: start: 20060908, end: 20060901
  2. DEXAMETHASONE 0.5MG TAB [Concomitant]
  3. MEROPENEM TRIHYDRATE [Concomitant]
     Route: 042
     Dates: start: 20060907
  4. VANCOMYCIN HYDROCHLORIDE [Concomitant]
     Route: 042

REACTIONS (3)
  - ANAEMIA [None]
  - EXTRADURAL ABSCESS [None]
  - SPONDYLITIS [None]
